FAERS Safety Report 4532093-5 (Version None)
Quarter: 2004Q4

REPORT INFORMATION
  Report Type: 
  Country: None (occurrence: None)
  Receive Date: 20041217
  Receipt Date: 20041210
  Transmission Date: 20050328
  Serious: Yes (Hospitalization)
  Sender: FDA-Public Use
  Company Number: 04-0098PO

PATIENT
  Age: 76 Year
  Sex: Male

DRUGS (10)
  1. PONTAL (MEFANIMIC ACID)/PONSTEL NDA 15-034 [Suspect]
     Indication: NASOPHARYNGITIS
     Dosage: 250 MG, BID, PO
     Route: 048
     Dates: start: 20041120, end: 20041124
  2. PONTAL (MEFANIMIC ACID)/PONSTEL NDA 15-034 [Suspect]
     Indication: PYREXIA
     Dosage: 250 MG, BID, PO
     Route: 048
     Dates: start: 20041120, end: 20041124
  3. LOXOPROFEN SODIUM (LOXOPROFEN SODIUM) [Suspect]
     Indication: NASOPHARYNGITIS
     Dosage: 60 MG, TID, PO
     Route: 048
     Dates: start: 20041115, end: 20041119
  4. CEFACLOR [Suspect]
     Indication: NASOPHARYNGITIS
     Dosage: 250 MG TID, PO
     Route: 048
     Dates: start: 20041115, end: 20041119
  5. CEFCAPENE PIVOXIL HYDROCHLORIDE (CEFCAPENE PIVOXIL HYDROCHLORIDE) [Suspect]
     Indication: NASOPHARYNGITIS
     Dosage: 100 MG TID, PO
     Route: 048
     Dates: start: 20041120, end: 20041124
  6. CEFCAPENE PIVOXIL HYDROCHLORIDE (CEFCAPENE PIVOXIL HYDROCHLORIDE) [Suspect]
     Indication: PYREXIA
     Dosage: 100 MG TID, PO
     Route: 048
     Dates: start: 20041120, end: 20041124
  7. INDOMETHACIN [Suspect]
     Dosage: 25 MG, BID, RECTALLY
     Route: 054
     Dates: start: 20041120, end: 20041124
  8. MIRADOL [Concomitant]
  9. ARTANE [Concomitant]
  10. INSULIN [Concomitant]

REACTIONS (6)
  - ASPIRATION [None]
  - BLISTER [None]
  - HEPATITIS [None]
  - HYPOXIA [None]
  - RENAL FAILURE ACUTE [None]
  - RHABDOMYOLYSIS [None]
